FAERS Safety Report 24129368 (Version 2)
Quarter: 2024Q3

REPORT INFORMATION
  Report Type: Report from Study
  Country: US (occurrence: US)
  Receive Date: 20240723
  Receipt Date: 20240731
  Transmission Date: 20241016
  Serious: Yes (Other)
  Sender: JOHNSON AND JOHNSON
  Company Number: US-JNJFOC-20240747881

PATIENT
  Age: 51 Year
  Sex: Female

DRUGS (1)
  1. SPRAVATO [Suspect]
     Active Substance: ESKETAMINE
     Indication: Depression
     Dosage: ^84 MG, 20 TOTAL DOSES^
     Dates: start: 20240328, end: 20240711

REACTIONS (4)
  - Pneumonia [Unknown]
  - Oxygen saturation decreased [Unknown]
  - Obsessive-compulsive disorder [Unknown]
  - Depression [Unknown]

NARRATIVE: CASE EVENT DATE: 20240101
